FAERS Safety Report 10843059 (Version 1)
Quarter: 2015Q1

REPORT INFORMATION
  Report Type: Report from Study
  Country: US (occurrence: US)
  Receive Date: 20150220
  Receipt Date: 20150220
  Transmission Date: 20150721
  Serious: No
  Sender: FDA-Public Use
  Company Number: US-ABBVIE-14P-163-1275906-00

PATIENT
  Age: 42 Year
  Sex: Female

DRUGS (1)
  1. HUMIRA [Suspect]
     Active Substance: ADALIMUMAB
     Indication: ANKYLOSING SPONDYLITIS
     Route: 065
     Dates: start: 20140310, end: 201407

REACTIONS (6)
  - Cough [Not Recovered/Not Resolved]
  - Otorrhoea [Unknown]
  - Ear pain [Recovering/Resolving]
  - Respiratory tract congestion [Not Recovered/Not Resolved]
  - Tympanic membrane disorder [Unknown]
  - Ear infection [Unknown]

NARRATIVE: CASE EVENT DATE: 2014
